FAERS Safety Report 8583978-4 (Version None)
Quarter: 2012Q3

REPORT INFORMATION
  Report Type: 
  Country: None (occurrence: None)
  Receive Date: 20120810
  Receipt Date: 20120717
  Transmission Date: 20120928
  Serious: No
  Sender: FDA-Public Use
  Company Number: US-009507513-1207USA008525

PATIENT

DRUGS (6)
  1. PEG-INTRON [Suspect]
     Indication: HEPATITIS C
     Dosage: 120 MICROGRAM, QW
     Route: 058
     Dates: start: 20120501
  2. LACTULOSE [Concomitant]
  3. CELEBREX [Concomitant]
  4. INCIVEK [Concomitant]
  5. RIBAVIRIN [Concomitant]
  6. ZOLPIDEM TARTRATE [Concomitant]

REACTIONS (2)
  - DEPRESSED MOOD [None]
  - DYSPEPSIA [None]
